FAERS Safety Report 8346315-6 (Version None)
Quarter: 2012Q2

REPORT INFORMATION
  Report Type: 
  Country: None (occurrence: None)
  Receive Date: 20120507
  Receipt Date: 20120423
  Transmission Date: 20120825
  Serious: Yes (Hospitalization, Other)
  Sender: FDA-Public Use
  Company Number: AUR-APL-2011-04918

PATIENT
  Age: 42 Year
  Sex: Female

DRUGS (3)
  1. DIVALPROEX SODIUM [Suspect]
     Indication: BIPOLAR DISORDER
     Dosage: (1000 MG, 1 D), 500 MG (250 MG, 2 IN 1 D)
  2. LAMOTRIGINE [Concomitant]
  3. WARFARIN SODIUM [Suspect]
     Indication: PRODUCT USED FOR UNKNOWN INDICATION
     Dosage: (2.5 MG), UNKNOWN

REACTIONS (7)
  - CORONARY ARTERY DISEASE [None]
  - DRUG INTERACTION [None]
  - INFLAMMATION [None]
  - EPISTAXIS [None]
  - INTERNATIONAL NORMALISED RATIO INCREASED [None]
  - CARDIAC FAILURE CONGESTIVE [None]
  - MITRAL VALVE INCOMPETENCE [None]
